FAERS Safety Report 14649967 (Version 2)
Quarter: 2021Q3

REPORT INFORMATION
  Report Type: Spontaneous
  Country: US (occurrence: US)
  Receive Date: 20180316
  Receipt Date: 20210907
  Transmission Date: 20211014
  Serious: Yes (Disabling)
  Sender: FDA-Public Use
  Company Number: US-TEVA-2018-US-870707

PATIENT
  Age: 64 Year
  Sex: Female
  Weight: 86 kg

DRUGS (21)
  1. LIDOCAINE?PRILOCAINE [Concomitant]
     Active Substance: LIDOCAINE\PRILOCAINE
     Dosage: DOSE: 2.5%
     Route: 065
  2. DOCETAXEL SAGENT [Suspect]
     Active Substance: DOCETAXEL
     Indication: BREAST CANCER FEMALE
     Dosage: DOSE: 145 MG
     Route: 065
     Dates: start: 20150114, end: 20150428
  3. PREVIDENT [Concomitant]
     Active Substance: SODIUM FLUORIDE
     Route: 065
     Dates: start: 20141220, end: 20150114
  4. VALACYCLOVIR [Concomitant]
     Active Substance: VALACYCLOVIR HYDROCHLORIDE
     Route: 065
  5. DEXAMETHASONE. [Concomitant]
     Active Substance: DEXAMETHASONE
     Dosage: DOSE: 4 MG
     Route: 048
  6. CLARITIN [Concomitant]
     Active Substance: LORATADINE
     Route: 065
  7. DOCETAXEL DR REDDYS [Suspect]
     Active Substance: DOCETAXEL
     Indication: BREAST CANCER FEMALE
     Route: 065
  8. CLEOCIN?T [Concomitant]
     Dosage: 1% EXTERNAL LOTION
     Route: 065
  9. DIOVAN HCT [Concomitant]
     Active Substance: HYDROCHLOROTHIAZIDE\VALSARTAN
     Dosage: DOSE: 320?12.5 MG
     Route: 048
     Dates: start: 20080114, end: 20130519
  10. CYTOXAN [Concomitant]
     Active Substance: CYCLOPHOSPHAMIDE
     Route: 065
  11. ATORVASTATIN [Concomitant]
     Active Substance: ATORVASTATIN
     Route: 065
     Dates: start: 20120201, end: 20140330
  12. MICRO?K [Concomitant]
     Active Substance: POTASSIUM CHLORIDE
     Dosage: DOSE: 10 MEQ
     Route: 065
     Dates: start: 20150108, end: 20150114
  13. ANASTROZOLE. [Concomitant]
     Active Substance: ANASTROZOLE
     Route: 065
  14. PROCHLORPERAZINE MALEATE. [Concomitant]
     Active Substance: PROCHLORPERAZINE MALEATE
     Dosage: DOSE: 10 MG
     Route: 048
  15. KETOCONAZOLE. [Concomitant]
     Active Substance: KETOCONAZOLE
     Dosage: DOSE: 2% EXTERNAL SHAMPOO
     Route: 065
  16. LIVALO [Concomitant]
     Active Substance: PITAVASTATIN CALCIUM
     Dosage: DOSE: 1 MG DAILY
     Route: 048
     Dates: start: 20141027, end: 20150114
  17. PRILOSEC [Concomitant]
     Active Substance: OMEPRAZOLE MAGNESIUM
     Dosage: DOSE: 20 MG, TAKE ONE CAPSULE DAILY
     Route: 048
     Dates: start: 20130722, end: 20150114
  18. DIOVAN HCT [Concomitant]
     Active Substance: HYDROCHLOROTHIAZIDE\VALSARTAN
     Dosage: DOSE: 80/12 .5 MG, ONE TABLET DAILY
     Route: 048
     Dates: start: 20130310, end: 20150114
  19. PSYLLIUM SEED [Concomitant]
     Route: 065
  20. COLLAGEN [Concomitant]
     Active Substance: COLLAGEN
     Route: 048
  21. HYDROCODONE?ACETAMINOPHEN [Concomitant]
     Active Substance: ACETAMINOPHEN\HYDROCODONE
     Route: 065

REACTIONS (4)
  - Hair texture abnormal [Not Recovered/Not Resolved]
  - Hair colour changes [Not Recovered/Not Resolved]
  - Fatigue [Unknown]
  - Alopecia areata [Not Recovered/Not Resolved]

NARRATIVE: CASE EVENT DATE: 20150428
